FAERS Safety Report 20834141 (Version 1)
Quarter: 2022Q2

REPORT INFORMATION
  Report Type: Spontaneous
  Country: US (occurrence: None)
  Receive Date: 20220514
  Receipt Date: 20220514
  Transmission Date: 20220721
  Serious: Yes (unspecified)
  Sender: FDA-Public Use
  Company Number: None

PATIENT
  Age: 47 Year
  Sex: Female
  Weight: 54 kg

DRUGS (1)
  1. QWO [Suspect]
     Active Substance: COLLAGENASE CLOSTRIDIUM HISTOLYTICUM-AAES
     Indication: Cellulite
     Dosage: OTHER FREQUENCY : ONCE INJECTED;?
     Route: 058
     Dates: start: 20220211, end: 20220212

REACTIONS (1)
  - Haemosiderin stain [None]

NARRATIVE: CASE EVENT DATE: 20220211
